FAERS Safety Report 20688381 (Version 1)
Quarter: 2022Q2

REPORT INFORMATION
  Report Type: Spontaneous
  Country: US (occurrence: US)
  Receive Date: 20220408
  Receipt Date: 20220408
  Transmission Date: 20220720
  Serious: Yes (Other)
  Sender: FDA-Public Use
  Company Number: US-CELLTRION INC.-2022US004171

PATIENT

DRUGS (1)
  1. TRUXIMA [Suspect]
     Active Substance: RITUXIMAB-ABBS
     Indication: Nodular lymphocyte predominant Hodgkin lymphoma
     Dosage: 870 MG Q28DAYS
     Dates: start: 20220330

REACTIONS (2)
  - Nodular lymphocyte predominant Hodgkin lymphoma [Unknown]
  - Off label use [Unknown]

NARRATIVE: CASE EVENT DATE: 20220330
